FAERS Safety Report 8877724 (Version 2)
Quarter: 2012Q4

REPORT INFORMATION
  Report Type: 
  Country: US (occurrence: US)
  Receive Date: 20121024
  Receipt Date: 20121108
  Transmission Date: 20130627
  Serious: Yes (Hospitalization)
  Sender: FDA-Public Use
  Company Number: US-ASTELLAS-2012US010290

PATIENT
  Age: 47 Year
  Sex: Female

DRUGS (6)
  1. PROGRAF [Suspect]
     Indication: RENAL TRANSPLANT
     Dosage: 3 mg, bid
     Route: 048
     Dates: start: 20110218
  2. KEPPRA [Concomitant]
     Indication: BIPOLAR DISORDER
     Dosage: 750 mg, bid
     Route: 048
  3. DEPAKOTE [Concomitant]
     Indication: BIPOLAR DISORDER
     Dosage: 500 mg, bid
     Route: 048
  4. LEXAPRO [Concomitant]
     Indication: BIPOLAR DISORDER
     Dosage: 30 mg, UID/QD
     Route: 048
  5. ATIVAN [Concomitant]
     Indication: BIPOLAR DISORDER
     Dosage: 2 mg am, 4 mg pm
     Route: 048
  6. RESTORIL                           /00054301/ [Concomitant]
     Indication: INSOMNIA
     Dosage: 15 mg, QHS
     Route: 048

REACTIONS (1)
  - Treatment noncompliance [Unknown]
